FAERS Safety Report 15592436 (Version 3)
Quarter: 2018Q4

REPORT INFORMATION
  Report Type: Spontaneous
  Country: US (occurrence: US)
  Receive Date: 20181106
  Receipt Date: 20181217
  Transmission Date: 20190205
  Serious: No
  Sender: FDA-Public Use
  Company Number: US-PFIZER INC-2018444205

PATIENT
  Age: 38 Year
  Sex: Female
  Weight: 65.76 kg

DRUGS (2)
  1. LEVOTHYROXINE. [Concomitant]
     Active Substance: LEVOTHYROXINE
     Indication: HYPOTHYROIDISM
     Dosage: 75 UG, DAILY
     Route: 048
  2. PREMARIN [Suspect]
     Active Substance: ESTROGENS, CONJUGATED
     Indication: HYSTERECTOMY
     Dosage: 0.5 G, CYCLIC(APPLYING INSIDE VAGINAL CANAL WHERE CERVIX WOULD BE IF HAVE ONE 2-3 TIMES A WEEK)
     Route: 067
     Dates: start: 20181010

REACTIONS (6)
  - Product use in unapproved indication [Unknown]
  - Breast pain [Unknown]
  - Disturbance in sexual arousal [Recovering/Resolving]
  - Breast swelling [Unknown]
  - Breast discomfort [Unknown]
  - Intentional product misuse [Unknown]

NARRATIVE: CASE EVENT DATE: 20181010
